FAERS Safety Report 5874866-2 (Version None)
Quarter: 2008Q3

REPORT INFORMATION
  Report Type: 
  Country: None (occurrence: None)
  Receive Date: 20080904
  Receipt Date: 20080307
  Transmission Date: 20090109
  Serious: Yes (Hospitalization, Disabling)
  Sender: FDA-Public Use
  Company Number: 2008-00260FE

PATIENT
  Age: 37 Year
  Sex: Female

DRUGS (2)
  1. CHORIONIC GONADOTROPIN [Suspect]
     Indication: INFERTILITY
     Dosage: 5000 IU IM
     Route: 030
     Dates: start: 19990524, end: 19990524
  2. MENOTROPINS [Suspect]
     Indication: INFERTILITY
     Dosage: 150 IU/75 IU TP
     Route: 064
     Dates: start: 19990511, end: 19990522

REACTIONS (22)
  - ACTIVITIES OF DAILY LIVING IMPAIRED [None]
  - ANTITHROMBIN III DECREASED [None]
  - ASCITES [None]
  - BASILAR ARTERY OCCLUSION [None]
  - BASILAR ARTERY THROMBOSIS [None]
  - BLOOD ALBUMIN DECREASED [None]
  - DISORIENTATION [None]
  - FIBRIN DEGRADATION PRODUCTS INCREASED [None]
  - GAZE PALSY [None]
  - HAEMATOCRIT INCREASED [None]
  - HYPERCOAGULATION [None]
  - LOSS OF CONSCIOUSNESS [None]
  - MYDRIASIS [None]
  - NEUROLOGICAL EXAMINATION ABNORMAL [None]
  - OEDEMA PERIPHERAL [None]
  - OESTRADIOL DECREASED [None]
  - OVARIAN HYPERSTIMULATION SYNDROME [None]
  - PROTEIN TOTAL DECREASED [None]
  - PUPILLARY REFLEX IMPAIRED [None]
  - RED BLOOD CELL COUNT INCREASED [None]
  - THROMBIN-ANTITHROMBIN III COMPLEX INCREASED [None]
  - WHITE BLOOD CELL COUNT INCREASED [None]
